FAERS Safety Report 5106861-5 (Version None)
Quarter: 2006Q3

REPORT INFORMATION
  Report Type: 
  Country: None (occurrence: None)
  Receive Date: 20060913
  Receipt Date: 20060830
  Transmission Date: 20061208
  Serious: Yes (Death)
  Sender: FDA-Public Use
  Company Number: NZ200605003729

PATIENT
  Age: 42 Year
  Sex: Male

DRUGS (3)
  1. ZYPREXA [Suspect]
     Indication: AGITATION
     Dosage: 10 MG, OTHER, INTRAMUSCULAR
     Route: 030
     Dates: start: 20060327
  2. ZYPREXA [Suspect]
     Indication: AGITATION
     Dosage: 10 MG, OTHER, ORAL
     Route: 048
     Dates: start: 20060301
  3. LORAZEPAM [Concomitant]

REACTIONS (1)
  - PULMONARY EMBOLISM [None]
